FAERS Safety Report 6161828-3 (Version None)
Quarter: 2009Q2

REPORT INFORMATION
  Report Type: 
  Country: None (occurrence: None)
  Receive Date: 20090421
  Receipt Date: 20090409
  Transmission Date: 20091009
  Serious: Yes (Hospitalization)
  Sender: FDA-Public Use
  Company Number: FR-ROCHE-569396

PATIENT
  Sex: Male
  Weight: 72 kg

DRUGS (3)
  1. PEG-INTERFERON ALFA 2A (RO 25-8310) [Suspect]
     Route: 065
     Dates: start: 20070410, end: 20071009
  2. EPOETIN BETA [Suspect]
     Dosage: UNITS REPORTED AS I. DRUG PERMANENTLY DISCONTINUED.
     Route: 058
     Dates: start: 20070801, end: 20070920
  3. RIBAVIRIN [Suspect]
     Route: 065
     Dates: start: 20070410, end: 20071009

REACTIONS (1)
  - ACUTE CORONARY SYNDROME [None]
